FAERS Safety Report 23607970 (Version 2)
Quarter: 2024Q1

REPORT INFORMATION
  Report Type: Spontaneous
  Country: GB (occurrence: GB)
  Receive Date: 20240307
  Receipt Date: 20240312
  Transmission Date: 20240410
  Serious: Yes (Death, Disabling, Other)
  Sender: FDA-Public Use
  Company Number: GB-009507513-2403GBR000638

PATIENT
  Age: 68 Year
  Sex: Female
  Weight: 50.2 kg

DRUGS (1)
  1. PEMBROLIZUMAB [Suspect]
     Active Substance: PEMBROLIZUMAB
     Indication: Colorectal cancer metastatic
     Dosage: 400MG, EVERY 6 WEEKS, RECEIVED 3 CYCLES
     Dates: start: 20230906, end: 20231129

REACTIONS (4)
  - Hepatic failure [Fatal]
  - Enterocolonic fistula [Unknown]
  - Intestinal dilatation [Recovered/Resolved]
  - Hepatic steatosis [Unknown]

NARRATIVE: CASE EVENT DATE: 20230101
